FAERS Safety Report 8487924-3 (Version None)
Quarter: 2012Q3

REPORT INFORMATION
  Report Type: 
  Country: None (occurrence: None)
  Receive Date: 20120705
  Receipt Date: 20120628
  Transmission Date: 20120928
  Serious: Yes (Hospitalization)
  Sender: FDA-Public Use
  Company Number: FR-PFIZER INC-2012155331

PATIENT
  Age: 64 Year
  Sex: Female

DRUGS (23)
  1. LYRICA [Suspect]
     Dosage: UNK
     Dates: start: 20120424
  2. ZANTAC [Suspect]
     Dosage: UNK
     Dates: start: 20120423
  3. ATARAX [Suspect]
     Dosage: UNK
     Dates: start: 20120423
  4. PIASCLEDINE [Concomitant]
  5. LEVOFLOXACIN [Concomitant]
     Dosage: UNK
     Dates: start: 20120427
  6. TRAMADOL [Concomitant]
  7. OXYCODONE HCL [Suspect]
     Dosage: UNK
     Dates: start: 20120424
  8. KETOPROFEN [Suspect]
     Dosage: UNK
     Dates: start: 20120424
  9. PARACETAMOL [Concomitant]
  10. IPRATROPIUM [Concomitant]
     Dosage: UNK
     Dates: start: 20120427
  11. ARIXTRA [Concomitant]
     Dosage: UNK
     Dates: start: 20120427
  12. CELEBREX [Suspect]
     Dosage: UNK
     Dates: start: 20120424
  13. XYZAL [Concomitant]
  14. TERBUTALINE [Concomitant]
     Dosage: UNK
     Dates: start: 20120427
  15. POLARAMINE [Concomitant]
     Dosage: UNK
     Dates: start: 20120427
  16. VANCOMYCIN HYCHLORIDE [Suspect]
     Dosage: UNK
     Dates: start: 20120424
  17. PYOSTACINE [Suspect]
     Dosage: UNK
     Dates: start: 20120424
  18. OXYCONTIN [Suspect]
     Dosage: UNK
     Dates: start: 20120424
  19. ACUPAN [Suspect]
     Dosage: UNK
     Dates: start: 20120424
  20. ONDANSETRON HCL [Suspect]
     Dosage: UNK
     Dates: start: 20120424
  21. ERYTHROMYCIN [Suspect]
     Dosage: UNK
     Dates: start: 20120425
  22. PRADAXA [Suspect]
     Dosage: UNK
     Dates: start: 20120425
  23. OMEPRAZOLE [Concomitant]

REACTIONS (2)
  - LIVER INJURY [None]
  - ACUTE GENERALISED EXANTHEMATOUS PUSTULOSIS [None]
